FAERS Safety Report 8840425 (Version 1)
Quarter: 2012Q4

REPORT INFORMATION
  Report Type: 
  Country: US (occurrence: US)
  Receive Date: 20121015
  Receipt Date: 20121015
  Transmission Date: 20130627
  Serious: Yes (Hospitalization)
  Sender: FDA-Public Use
  Company Number: US-ROCHE-1124137

PATIENT
  Sex: Female
  Weight: 52 kg

DRUGS (2)
  1. NUTROPIN AQ [Suspect]
     Indication: TURNER^S SYNDROME
     Route: 058
     Dates: start: 199711
  2. PREMARIN [Concomitant]
     Route: 048

REACTIONS (4)
  - Eye injury [Recovering/Resolving]
  - Weight increased [Unknown]
  - Cardiac murmur [Unknown]
  - Injection site pain [Unknown]
